FAERS Safety Report 7814855-1 (Version None)
Quarter: 2011Q4

REPORT INFORMATION
  Report Type: 
  Country: None (occurrence: None)
  Receive Date: 20111014
  Receipt Date: 20111003
  Transmission Date: 20120403
  Serious: Yes (Other)
  Sender: FDA-Public Use
  Company Number: FR-ROCHE-1004320

PATIENT
  Sex: Female

DRUGS (7)
  1. MABTHERA [Suspect]
     Route: 041
     Dates: start: 20090825, end: 20110630
  2. METOPROLOL TARTRATE [Concomitant]
  3. ECAZIDE [Concomitant]
  4. FLUDARABINE PHOSPHATE [Suspect]
     Indication: CHRONIC LYMPHOCYTIC LEUKAEMIA
     Route: 002
     Dates: start: 20090126, end: 20090422
  5. MABTHERA [Suspect]
     Indication: CHRONIC LYMPHOCYTIC LEUKAEMIA
     Route: 041
     Dates: start: 20090126, end: 20090422
  6. CYCLOPHOSPHAMIDE [Suspect]
     Indication: CHRONIC LYMPHOCYTIC LEUKAEMIA
     Route: 002
     Dates: start: 20090126, end: 20090422
  7. PRAVASTATIN [Concomitant]

REACTIONS (1)
  - BASAL CELL CARCINOMA [None]
